FAERS Safety Report 9580051 (Version 1)
Quarter: 2013Q3

REPORT INFORMATION
  Report Type: Spontaneous
  Country: US (occurrence: None)
  Receive Date: 20130916
  Receipt Date: 20130916
  Transmission Date: 20140515
  Serious: Yes (Other)
  Sender: FDA-Public Use
  Company Number: JPI-P-027625

PATIENT
  Age: 33 Year
  Sex: Male

DRUGS (1)
  1. XYREM ?(500 MILLIGRAM/MILLILITERS, SOLUTION)(SODIUM OXYBATE) [Suspect]
     Indication: CATAPLEXY
     Route: 048
     Dates: start: 20121018, end: 2012

REACTIONS (3)
  - Suicidal ideation [None]
  - Anger [None]
  - Feeling abnormal [None]
